FAERS Safety Report 14696119 (Version 2)
Quarter: 2018Q2

REPORT INFORMATION
  Report Type: Spontaneous
  Country: US (occurrence: US)
  Receive Date: 20180329
  Receipt Date: 20180404
  Transmission Date: 20180711
  Serious: No
  Sender: FDA-Public Use
  Company Number: US-SA-2017SA061586

PATIENT
  Age: 46 Year
  Sex: Female

DRUGS (1)
  1. ALLEGRA D-12 HOUR [Suspect]
     Active Substance: FEXOFENADINE HYDROCHLORIDE\PSEUDOEPHEDRINE HYDROCHLORIDE
     Route: 065
     Dates: end: 20170315

REACTIONS (3)
  - Drug screen positive [Unknown]
  - Intentional product misuse [Unknown]
  - Urine amphetamine positive [Unknown]

NARRATIVE: CASE EVENT DATE: 20170404
